FAERS Safety Report 8835295 (Version 2)
Quarter: 2012Q4

REPORT INFORMATION
  Report Type: Report from Study
  Country: US (occurrence: US)
  Receive Date: 20121011
  Receipt Date: 20121022
  Transmission Date: 20130627
  Serious: Yes (Life-Threatening, Hospitalization)
  Sender: FDA-Public Use
  Company Number: US-BRISTOL-MYERS SQUIBB COMPANY-17023714

PATIENT
  Age: 67 Year
  Sex: Male
  Weight: 81 kg

DRUGS (3)
  1. CETUXIMAB [Suspect]
     Indication: RECTAL CANCER
     Dosage: 250 mg/m2 since cycle6 and total dose 485mg.
     Route: 065
     Dates: start: 20111220, end: 20120919
  2. RAMUCIRUMAB [Suspect]
     Indication: RECTAL CANCER
     Dosage: total dose during the course 649.6mg
     Route: 065
     Dates: start: 20111220, end: 20120919
  3. IRINOTECAN HCL [Suspect]
     Indication: RECTAL CANCER
     Route: 065
     Dates: start: 20111220, end: 20120222

REACTIONS (2)
  - Myocardial infarction [Recovered/Resolved]
  - Embolism [Recovered/Resolved]
